FAERS Safety Report 13001908 (Version 3)
Quarter: 2017Q1

REPORT INFORMATION
  Report Type: Report from Study
  Country: US (occurrence: US)
  Receive Date: 20161206
  Receipt Date: 20170224
  Transmission Date: 20170428
  Serious: Yes (Death, Other)
  Sender: FDA-Public Use
  Company Number: US-009507513-1611USA014116

PATIENT
  Age: 73 Year
  Sex: Female

DRUGS (2)
  1. KEYTRUDA [Suspect]
     Active Substance: PEMBROLIZUMAB
     Dosage: 139 MG, ONCE
     Route: 041
     Dates: start: 20160519, end: 20160519
  2. KEYTRUDA [Suspect]
     Active Substance: PEMBROLIZUMAB
     Indication: BREAST CANCER METASTATIC
     Dosage: 139 MG, ONCE
     Route: 041
     Dates: start: 20160429, end: 20160429

REACTIONS (3)
  - Death [Fatal]
  - Hospice care [Unknown]
  - Product use issue [Unknown]

NARRATIVE: CASE EVENT DATE: 20160429
